FAERS Safety Report 9220312 (Version 2)
Quarter: 2013Q2

REPORT INFORMATION
  Report Type: Spontaneous
  Country: US (occurrence: US)
  Receive Date: 20130409
  Receipt Date: 20130507
  Transmission Date: 20140414
  Serious: Yes (Hospitalization, Other)
  Sender: FDA-Public Use
  Company Number: US-GILEAD-2013-0072958

PATIENT
  Sex: Female

DRUGS (2)
  1. LETAIRIS [Suspect]
     Indication: PULMONARY HYPERTENSION
     Dosage: 5 MG, QD
     Dates: start: 20090701
  2. ADCIRCA [Concomitant]

REACTIONS (3)
  - Haemorrhage [Unknown]
  - Syncope [Recovered/Resolved]
  - Pulmonary hypertension [Not Recovered/Not Resolved]
